FAERS Safety Report 9693296 (Version 1)
Quarter: 2013Q4

REPORT INFORMATION
  Report Type: Spontaneous
  Country: US (occurrence: None)
  Receive Date: 20131114
  Receipt Date: 20131114
  Transmission Date: 20140711
  Serious: Yes (Other)
  Sender: FDA-Public Use
  Company Number: 2013-US-002466

PATIENT
  Sex: Female

DRUGS (1)
  1. LUVOX CR [Suspect]
     Indication: OBSESSIVE-COMPULSIVE DISORDER

REACTIONS (2)
  - Lung infection [None]
  - Chest X-ray abnormal [None]
